FAERS Safety Report 8819723 (Version 1)
Quarter: 2012Q4

REPORT INFORMATION
  Report Type: 
  Country: US (occurrence: US)
  Receive Date: 20121001
  Receipt Date: 20121001
  Transmission Date: 20130627
  Serious: Yes (Other)
  Sender: FDA-Public Use
  Company Number: US-ROCHE-1129866

PATIENT
  Sex: Female

DRUGS (4)
  1. HERCEPTIN [Suspect]
     Indication: OVARIAN CANCER
     Dosage: Loading Dose
     Route: 065
  2. HERCEPTIN [Suspect]
     Dosage: Maintenance Dose
     Route: 065
  3. TYLENOL [Concomitant]
  4. BENADRYL [Concomitant]

REACTIONS (12)
  - Vomiting [Unknown]
  - Asthenia [Unknown]
  - Fatigue [Unknown]
  - No therapeutic response [Unknown]
  - Oedema [Unknown]
  - Nausea [Unknown]
  - Abdominal discomfort [Unknown]
  - Decreased appetite [Unknown]
  - Dry mouth [Unknown]
  - Lethargy [Unknown]
  - Metastases to lymph nodes [Unknown]
  - Small intestinal obstruction [Unknown]
